FAERS Safety Report 18199315 (Version 4)
Quarter: 2020Q4

REPORT INFORMATION
  Report Type: Report from Study
  Country: EG (occurrence: EG)
  Receive Date: 20200826
  Receipt Date: 20201006
  Transmission Date: 20210113
  Serious: Yes (Other)
  Sender: FDA-Public Use
  Company Number: NVSC2020EG231274

PATIENT
  Sex: Female

DRUGS (1)
  1. TASIGNA [Suspect]
     Active Substance: NILOTINIB
     Indication: CHRONIC MYELOID LEUKAEMIA
     Dosage: 800 MG, QD (SINCE 2011 OR 2012)
     Route: 065

REACTIONS (23)
  - Intervertebral disc disorder [Recovering/Resolving]
  - Purulence [Recovered/Resolved]
  - Cytogenetic analysis abnormal [Not Recovered/Not Resolved]
  - Alopecia [Not Recovered/Not Resolved]
  - Tachycardia [Not Recovered/Not Resolved]
  - Pruritus [Not Recovered/Not Resolved]
  - Acne [Not Recovered/Not Resolved]
  - Product storage error [Unknown]
  - Product dose omission issue [Not Recovered/Not Resolved]
  - Mobility decreased [Not Recovered/Not Resolved]
  - Myositis [Recovering/Resolving]
  - Blood viscosity increased [Recovered/Resolved]
  - Sensitivity to weather change [Not Recovered/Not Resolved]
  - Palpitations [Not Recovered/Not Resolved]
  - Nail bed inflammation [Recovered/Resolved]
  - Ulcer [Not Recovered/Not Resolved]
  - Gastrooesophageal reflux disease [Not Recovered/Not Resolved]
  - Delirium [Not Recovered/Not Resolved]
  - Thrombosis [Recovered/Resolved]
  - Hypotension [Not Recovered/Not Resolved]
  - Pyrexia [Not Recovered/Not Resolved]
  - Dry skin [Not Recovered/Not Resolved]
  - Maternal exposure during pregnancy [Recovered/Resolved]

NARRATIVE: CASE EVENT DATE: 2011
